FAERS Safety Report 6913240-4 (Version None)
Quarter: 2010Q3

REPORT INFORMATION
  Report Type: 
  Country: None (occurrence: None)
  Receive Date: 20100809
  Receipt Date: 20100730
  Transmission Date: 20110219
  Serious: Yes (Other)
  Sender: FDA-Public Use
  Company Number: US-BIOGENIDEC-2006BI006651

PATIENT
  Age: 67 Year
  Sex: Female
  Weight: 67 kg

DRUGS (7)
  1. AVONEX [Suspect]
     Indication: MULTIPLE SCLEROSIS
     Route: 030
     Dates: start: 19970101, end: 20030101
  2. AVONEX [Suspect]
     Route: 030
     Dates: start: 20030101, end: 20041201
  3. AVONEX [Suspect]
     Route: 030
     Dates: start: 20050301
  4. ESTRADIOL [Concomitant]
     Indication: HORMONE REPLACEMENT THERAPY
  5. VITAMIN D [Concomitant]
     Indication: ROUTINE HEALTH MAINTENANCE
  6. M.V.I. [Concomitant]
     Indication: ROUTINE HEALTH MAINTENANCE
  7. ACETAMINOPHEN [Concomitant]
     Indication: PREMEDICATION
     Dates: start: 19970101

REACTIONS (8)
  - BREAST CANCER STAGE I [None]
  - BREAST PAIN [None]
  - CATARACT [None]
  - COORDINATION ABNORMAL [None]
  - INJECTION SITE VESICLES [None]
  - PAIN IN EXTREMITY [None]
  - PERONEAL NERVE PALSY [None]
  - SKIN DISCOLOURATION [None]
